FAERS Safety Report 4698185-5 (Version None)
Quarter: 2005Q2

REPORT INFORMATION
  Report Type: 
  Country: None (occurrence: None)
  Receive Date: 20050623
  Receipt Date: 20050214
  Transmission Date: 20051028
  Serious: Yes (Other)
  Sender: FDA-Public Use
  Company Number: US-MERCK-0502USA01892

PATIENT
  Age: 48 Year
  Sex: Female
  Weight: 57 kg

DRUGS (4)
  1. VIOXX [Suspect]
     Indication: ARTHRITIS
     Route: 048
     Dates: start: 19990101, end: 20010101
  2. ZOCOR [Concomitant]
     Indication: BLOOD CHOLESTEROL INCREASED
     Route: 065
  3. VASOTEC [Concomitant]
     Route: 065
     Dates: start: 19970101
  4. WARFARIN [Concomitant]
     Route: 065
     Dates: start: 19970101

REACTIONS (2)
  - CEREBROVASCULAR ACCIDENT [None]
  - ROAD TRAFFIC ACCIDENT [None]
